FAERS Safety Report 8480456-8 (Version None)
Quarter: 2012Q3

REPORT INFORMATION
  Report Type: 
  Country: None (occurrence: None)
  Receive Date: 20120702
  Receipt Date: 20120620
  Transmission Date: 20120928
  Serious: Yes (Other)
  Sender: FDA-Public Use
  Company Number: IT-BIOGENIDEC-2012BI022651

PATIENT
  Age: 39 Year
  Sex: Male

DRUGS (2)
  1. NORVASC [Concomitant]
     Dates: start: 20111110, end: 20120504
  2. TYSABRI [Suspect]
     Indication: MULTIPLE SCLEROSIS
     Route: 042
     Dates: start: 20120208, end: 20120408

REACTIONS (1)
  - HEPATITIS ACUTE [None]
